FAERS Safety Report 9758502 (Version 1)
Quarter: 2013Q4

REPORT INFORMATION
  Report Type: Spontaneous
  Country: US (occurrence: None)
  Receive Date: 20131216
  Receipt Date: 20131216
  Transmission Date: 20140711
  Serious: No
  Sender: FDA-Public Use
  Company Number: 1000044880

PATIENT
  Age: 43 Year
  Sex: Female

DRUGS (2)
  1. LINZESS [Suspect]
     Indication: IRRITABLE BOWEL SYNDROME
     Dosage: 290MCG (290 MCG,1 IN 1 D), ORAL?
  2. LINZESS [Suspect]
     Indication: IRRITABLE BOWEL SYNDROME
     Dosage: 290MCG (290 MCG, 1 IN 1 D), ORAL?

REACTIONS (2)
  - Abdominal pain [None]
  - Abdominal distension [None]
